FAERS Safety Report 17810706 (Version 1)
Quarter: 2020Q2

REPORT INFORMATION
  Report Type: Spontaneous
  Country: CA (occurrence: CA)
  Receive Date: 20200521
  Receipt Date: 20200521
  Transmission Date: 20200714
  Serious: Yes (Other)
  Sender: FDA-Public Use
  Company Number: CA-AUROBINDO-AUR-APL-2020-025050

PATIENT
  Sex: Male

DRUGS (8)
  1. ALEMTUZUMAB [Suspect]
     Active Substance: ALEMTUZUMAB
     Dosage: 0.2 MILLIGRAM/KILOGRAM, ONCE A DAY
     Route: 042
  2. MYCOPHENOLATE MOFETIL. [Suspect]
     Active Substance: MYCOPHENOLATE MOFETIL
     Indication: PROPHYLAXIS AGAINST GRAFT VERSUS HOST DISEASE
     Dosage: UNK
     Route: 065
  3. MELPHALAN. [Suspect]
     Active Substance: MELPHALAN
     Indication: BONE MARROW CONDITIONING REGIMEN
     Dosage: 140 MILLIGRAM/SQ. METER, ONCE A DAY
     Route: 065
  4. ALEMTUZUMAB [Suspect]
     Active Substance: ALEMTUZUMAB
     Dosage: 0.2 MILLIGRAM/KILOGRAM, ONCE A DAY
     Route: 042
  5. ALEMTUZUMAB [Suspect]
     Active Substance: ALEMTUZUMAB
     Dosage: 0.2 MILLIGRAM/KILOGRAM, ONCE A DAY
     Route: 065
  6. CICLOSPORIN [Suspect]
     Active Substance: CYCLOSPORINE
     Indication: PROPHYLAXIS AGAINST GRAFT VERSUS HOST DISEASE
     Dosage: UNK
     Route: 065
  7. ALEMTUZUMAB [Suspect]
     Active Substance: ALEMTUZUMAB
     Indication: BONE MARROW CONDITIONING REGIMEN
     Dosage: 0.2 MILLIGRAM/KILOGRAM, ONCE A DAY
     Route: 065
  8. FLUDARABINE PHOSPHATE. [Suspect]
     Active Substance: FLUDARABINE PHOSPHATE
     Indication: BONE MARROW CONDITIONING REGIMEN
     Dosage: 30 MILLIGRAM/KILOGRAM, ONCE A DAY
     Route: 065

REACTIONS (6)
  - Intentional product use issue [Unknown]
  - Hypertension [Unknown]
  - Epstein-Barr virus infection [Unknown]
  - Product use in unapproved indication [Unknown]
  - Off label use [Unknown]
  - Human herpesvirus 6 infection [Unknown]
